FAERS Safety Report 23814465 (Version 3)
Quarter: 2024Q2

REPORT INFORMATION
  Report Type: Report from Study
  Country: US (occurrence: US)
  Receive Date: 20240503
  Receipt Date: 20240527
  Transmission Date: 20240716
  Serious: Yes (Other)
  Sender: FDA-Public Use
  Company Number: US-ARGENX-2024-ARGX-US002815

PATIENT

DRUGS (2)
  1. VYVGART [Suspect]
     Active Substance: EFGARTIGIMOD ALFA-FCAB
     Indication: Myasthenia gravis
     Dosage: UNK
     Route: 042
     Dates: start: 20220929
  2. VYVGART [Suspect]
     Active Substance: EFGARTIGIMOD ALFA-FCAB
     Dosage: UNK
     Route: 042
     Dates: start: 20240314

REACTIONS (6)
  - Myasthenia gravis [Unknown]
  - Lacrimation increased [Unknown]
  - Eye discharge [Unknown]
  - Seasonal allergy [Unknown]
  - Hypersensitivity [Unknown]
  - Sinusitis [Unknown]

NARRATIVE: CASE EVENT DATE: 20240424
